FAERS Safety Report 4642664-3 (Version None)
Quarter: 2005Q2

REPORT INFORMATION
  Report Type: 
  Country: None (occurrence: None)
  Receive Date: 20050422
  Receipt Date: 20050407
  Transmission Date: 20051028
  Serious: Yes (Other)
  Sender: FDA-Public Use
  Company Number: JP-JNJFOC-20050306654

PATIENT
  Age: 45 Year
  Sex: Male

DRUGS (7)
  1. ITRIZOLE [Suspect]
     Indication: PROPHYLAXIS
     Route: 049
  2. VINCRISTINE SULFATE [Interacting]
     Route: 041
  3. RITUXIMAB [Concomitant]
     Route: 041
  4. ETOPOSIDE [Concomitant]
     Route: 041
  5. DOXORUBICIN HYDROCHLORIDE [Concomitant]
     Route: 041
  6. PREDNISOLONE [Concomitant]
     Route: 049
  7. CYCLOPHOSPHAMIDE [Concomitant]
     Route: 041

REACTIONS (5)
  - CONSTIPATION [None]
  - DRUG INTERACTION [None]
  - DRUG LEVEL INCREASED [None]
  - NEUROTOXICITY [None]
  - WHITE BLOOD CELL COUNT DECREASED [None]
